FAERS Safety Report 5513015-7 (Version None)
Quarter: 2007Q4

REPORT INFORMATION
  Report Type: 
  Country: None (occurrence: None)
  Receive Date: 20071112
  Receipt Date: 20071112
  Transmission Date: 20080405
  Serious: Yes (Life-Threatening)
  Sender: FDA-Public Use
  Company Number: AU-PURDUE-USA_2007_0029870

PATIENT
  Age: 64 Year
  Sex: Female

DRUGS (4)
  1. MORPHINE SULFATE [Suspect]
     Indication: SENSORY DISTURBANCE
     Dosage: 5 MG, DAILY
     Route: 048
     Dates: start: 20070727, end: 20070727
  2. SUXAMETHONIUM CHLORIDE [Suspect]
     Indication: SENSORY DISTURBANCE
     Dosage: 100 MG, DAILY
     Route: 030
     Dates: start: 20070727, end: 20070727
  3. ATRACURIUM BESYLATE [Suspect]
     Indication: SENSORY DISTURBANCE
     Dosage: 30 MG, DAILY
     Route: 030
     Dates: start: 20070727, end: 20070727
  4. FENTANYL [Suspect]
     Indication: SENSORY DISTURBANCE
     Dosage: 100 MG, DAILY
     Dates: start: 20070727, end: 20070727

REACTIONS (1)
  - DRUG EFFECT PROLONGED [None]
